FAERS Safety Report 9170080 (Version 1)
Quarter: 2013Q1

REPORT INFORMATION
  Report Type: Spontaneous
  Country: US (occurrence: None)
  Receive Date: 20130314
  Receipt Date: 20130314
  Transmission Date: 20140127
  Serious: Yes (Other)
  Sender: FDA-Public Use
  Company Number: None

PATIENT
  Sex: Female
  Weight: 83.46 kg

DRUGS (2)
  1. DICLOFENAC [Suspect]
     Indication: BACK PAIN
     Dosage: 75MG BID PO
     Route: 048
     Dates: start: 20130302, end: 20130302
  2. DICLOFENAC [Suspect]
     Indication: PAIN IN EXTREMITY
     Dosage: 75MG BID PO
     Route: 048
     Dates: start: 20130302, end: 20130302

REACTIONS (2)
  - Headache [None]
  - Chest discomfort [None]
